FAERS Safety Report 7458946-6 (Version None)
Quarter: 2011Q2

REPORT INFORMATION
  Report Type: 
  Country: None (occurrence: None)
  Receive Date: 20110504
  Receipt Date: 20100809
  Transmission Date: 20111010
  Serious: No
  Sender: FDA-Public Use
  Company Number: US-SANOFI-AVENTIS-2010SA048922

PATIENT
  Age: 62 Year
  Sex: Male

DRUGS (5)
  1. LANTUS [Concomitant]
     Route: 058
     Dates: end: 20100101
  2. APIDRA [Suspect]
     Dosage: DOSAGE: 1-2 UNITS SLIDING SCALE DOSAGE
     Route: 058
     Dates: start: 20100101
  3. INSULIN DETEMIR [Concomitant]
     Route: 065
     Dates: start: 20100101
  4. ANTIHYPERTENSIVES [Suspect]
     Indication: BLOOD PRESSURE
     Route: 065
     Dates: start: 20100101
  5. HUMALOG [Concomitant]
     Dates: end: 20100101

REACTIONS (3)
  - RASH MACULAR [None]
  - RASH [None]
  - ACNE [None]
